FAERS Safety Report 5318628-3 (Version None)
Quarter: 2007Q2

REPORT INFORMATION
  Report Type: 
  Country: None (occurrence: None)
  Receive Date: 20070508
  Receipt Date: 20070428
  Transmission Date: 20071010
  Serious: Yes (Other)
  Sender: FDA-Public Use
  Company Number: PHEH2007US04870

PATIENT
  Age: 63 Year
  Sex: Female

DRUGS (3)
  1. ZELNORM [Suspect]
     Indication: GASTROOESOPHAGEAL REFLUX DISEASE
     Dosage: 6 MG, BID
     Route: 048
     Dates: start: 20070122, end: 20070409
  2. ALDACTONE [Concomitant]
     Indication: HYPERALDOSTERONISM
     Dosage: 50 MG, BID
     Route: 048
  3. FORTEO [Concomitant]
     Indication: OSTEOPOROSIS
     Dosage: 750 UG, QD
     Route: 030

REACTIONS (2)
  - BLOOD PRESSURE INCREASED [None]
  - CARDIAC DISORDER [None]
